FAERS Safety Report 7593913-3 (Version None)
Quarter: 2011Q3

REPORT INFORMATION
  Report Type: 
  Country: None (occurrence: None)
  Receive Date: 20110706
  Receipt Date: 20110629
  Transmission Date: 20111222
  Serious: Yes (Death, Hospitalization)
  Sender: FDA-Public Use
  Company Number: PHHY2011AR38834

PATIENT
  Sex: Male

DRUGS (1)
  1. DIOVAN [Suspect]
     Dosage: 160 MG, UNK
     Dates: start: 20100801, end: 20101101

REACTIONS (3)
  - MYOCARDIAL INFARCTION [None]
  - LUNG NEOPLASM MALIGNANT [None]
  - METASTASES TO BONE [None]
